FAERS Safety Report 21091880 (Version 4)
Quarter: 2024Q1

REPORT INFORMATION
  Report Type: Report from Study
  Country: FR (occurrence: FR)
  Receive Date: 20220717
  Receipt Date: 20240311
  Transmission Date: 20240409
  Serious: Yes (Hospitalization, Other)
  Sender: FDA-Public Use
  Company Number: FR-NOVARTISPH-NVSC2022FR156506

PATIENT
  Age: 58 Year
  Sex: Male
  Weight: 97 kg

DRUGS (7)
  1. PLUVICTO [Suspect]
     Active Substance: LUTETIUM LU-177 VIPIVOTIDE TETRAXETAN
     Indication: Hormone-refractory prostate cancer
     Dosage: 7066 MBQ (1ST INJECTION)
     Route: 042
     Dates: start: 20220426
  2. PLUVICTO [Suspect]
     Active Substance: LUTETIUM LU-177 VIPIVOTIDE TETRAXETAN
     Dosage: 7177 MBQ (2ND INJECTION)
     Route: 042
     Dates: start: 20220613
  3. FIRMAGON [Concomitant]
     Active Substance: DEGARELIX ACETATE
     Indication: Product used for unknown indication
     Dosage: 80 MG, QMO
     Route: 065
  4. SERTRALINE [Concomitant]
     Active Substance: SERTRALINE HYDROCHLORIDE
     Indication: Product used for unknown indication
     Dosage: 25 MG, QD
     Route: 065
  5. AMLODIPINE [Concomitant]
     Active Substance: AMLODIPINE BESYLATE
     Indication: Product used for unknown indication
     Dosage: 5 MG, QD
     Route: 065
  6. ALPRAZOLAM [Concomitant]
     Active Substance: ALPRAZOLAM
     Indication: Product used for unknown indication
     Dosage: 0.5 MG, QD
     Route: 065
  7. ALFUZOSIN [Concomitant]
     Active Substance: ALFUZOSIN
     Indication: Product used for unknown indication
     Dosage: 10 MG, QD
     Route: 065

REACTIONS (16)
  - Hepatic cytolysis [Not Recovered/Not Resolved]
  - Blood alkaline phosphatase increased [Not Recovered/Not Resolved]
  - Aspartate aminotransferase increased [Not Recovered/Not Resolved]
  - Alanine aminotransferase increased [Not Recovered/Not Resolved]
  - Blood bilirubin increased [Not Recovered/Not Resolved]
  - Gamma-glutamyltransferase increased [Not Recovered/Not Resolved]
  - General physical health deterioration [Not Recovered/Not Resolved]
  - Jaundice [Not Recovered/Not Resolved]
  - Faeces discoloured [Unknown]
  - Decreased appetite [Unknown]
  - Fatigue [Unknown]
  - Chromaturia [Unknown]
  - Weight decreased [Not Recovered/Not Resolved]
  - Nausea [Not Recovered/Not Resolved]
  - Vomiting [Not Recovered/Not Resolved]
  - Hepatic lesion [Unknown]

NARRATIVE: CASE EVENT DATE: 20220524
